FAERS Safety Report 6772461-4 (Version None)
Quarter: 2010Q2

REPORT INFORMATION
  Report Type: 
  Country: None (occurrence: None)
  Receive Date: 20100616
  Receipt Date: 20090611
  Transmission Date: 20101027
  Serious: No
  Sender: FDA-Public Use
  Company Number: US-ASTRAZENECA-2009UW15025

PATIENT
  Sex: Female

DRUGS (10)
  1. PULMICORT RESPULES [Suspect]
     Dosage: 0.5 MG/2.5 ML
     Route: 055
  2. THYROID TAB [Concomitant]
  3. IPRATROPIUM BROMIDE [Concomitant]
  4. ALBUTEROL [Concomitant]
  5. HCTZ [Concomitant]
  6. BENICAR [Concomitant]
  7. WELLBUTRIN XL [Concomitant]
  8. SINGULAIR [Concomitant]
  9. XALATAN [Concomitant]
  10. RESTASIS [Concomitant]

REACTIONS (3)
  - COUGH [None]
  - DYSPHONIA [None]
  - INCREASED UPPER AIRWAY SECRETION [None]
